FAERS Safety Report 10350354 (Version 1)
Quarter: 2014Q3

REPORT INFORMATION
  Report Type: Spontaneous
  Country: US (occurrence: None)
  Receive Date: 20140728
  Receipt Date: 20140728
  Transmission Date: 20150326
  Serious: No
  Sender: FDA-Public Use
  Company Number: None

PATIENT
  Age: 82 Year
  Sex: Female
  Weight: 58.97 kg

DRUGS (1)
  1. PLAQUENIL [Suspect]
     Active Substance: HYDROXYCHLOROQUINE SULFATE
     Indication: RHEUMATOID ARTHRITIS
     Dosage: 1 PILL
     Dates: start: 20140402, end: 20140409

REACTIONS (5)
  - Rash generalised [None]
  - Pruritus [None]
  - Insomnia [None]
  - Pain [None]
  - Economic problem [None]

NARRATIVE: CASE EVENT DATE: 20140406
